FAERS Safety Report 5083325-9 (Version None)
Quarter: 2006Q3

REPORT INFORMATION
  Report Type: 
  Country: None (occurrence: None)
  Receive Date: 20060818
  Receipt Date: 20060511
  Transmission Date: 20061208
  Serious: Yes (Other)
  Sender: FDA-Public Use
  Company Number: US-BAYER-200613154BWH

PATIENT
  Age: 45 Year
  Sex: Female
  Weight: 73 kg

DRUGS (7)
  1. AVELOX [Suspect]
     Indication: EAR INFECTION
     Dosage: TOTAL DAILY DOSE: 400 MG  UNIT DOSE: 400 MG
     Route: 048
     Dates: start: 20060309, end: 20060323
  2. AVELOX [Suspect]
     Dosage: TOTAL DAILY DOSE: 400 MG  UNIT DOSE: 400 MG
     Route: 048
     Dates: start: 20060330, end: 20060405
  3. CIPRODEX [Concomitant]
     Indication: EAR INFECTION
     Dates: start: 20060330
  4. FLOXIN OTIC [Concomitant]
     Indication: EAR INFECTION
     Dates: start: 20060309
  5. LOTRIMIN [Concomitant]
     Indication: FUNGAL INFECTION
     Dates: start: 20060301
  6. METHYLPREDNISOLONE [Concomitant]
     Indication: EAR INFECTION
     Dates: start: 20060309
  7. EFFEXOR [Concomitant]
     Dosage: AS USED: 112.5 MG
     Route: 048

REACTIONS (5)
  - DRUG EXPOSURE DURING PREGNANCY [None]
  - EAR INFECTION [None]
  - FUNGAL INFECTION [None]
  - HAEMORRHOIDS [None]
  - INTRA-UTERINE DEATH [None]
